FAERS Safety Report 9890800 (Version 1)
Quarter: 2014Q1

REPORT INFORMATION
  Report Type: Spontaneous
  Country: US (occurrence: US)
  Receive Date: 20140212
  Receipt Date: 20140212
  Transmission Date: 20141002
  Serious: No
  Sender: FDA-Public Use
  Company Number: US-PFIZER INC-2014036201

PATIENT
  Sex: 0

DRUGS (3)
  1. EFFEXOR [Suspect]
     Indication: DEPRESSION
     Dosage: UNK
  2. EFFEXOR [Suspect]
     Indication: MOOD SWINGS
  3. EFFEXOR [Suspect]
     Indication: ANXIETY

REACTIONS (3)
  - Paraesthesia [Unknown]
  - Drug intolerance [Unknown]
  - Drug withdrawal syndrome [Unknown]
